FAERS Safety Report 6468593-0 (Version None)
Quarter: 2009Q4

REPORT INFORMATION
  Report Type: 
  Country: None (occurrence: None)
  Receive Date: 20091203
  Receipt Date: 20091124
  Transmission Date: 20100525
  Serious: Yes (Other)
  Sender: FDA-Public Use
  Company Number: GB-ROCHE-495664

PATIENT
  Age: 46 Year
  Sex: Female
  Weight: 85 kg

DRUGS (7)
  1. XELODA [Suspect]
     Indication: BREAST CANCER
     Route: 048
     Dates: start: 20060831, end: 20061123
  2. XELODA [Suspect]
     Route: 048
     Dates: start: 20061129
  3. XELODA [Suspect]
     Dosage: DOSE REDUCED FOR CYCLE 4.
     Route: 048
     Dates: end: 20070402
  4. NAPROXEN [Concomitant]
     Indication: BONE PAIN
     Route: 048
     Dates: start: 20050101, end: 20061129
  5. SERETIDE [Concomitant]
     Indication: ASTHMA
     Route: 048
  6. VENTOLIN [Concomitant]
     Indication: ASTHMA
     Route: 048
  7. EPIRUBICIN [Concomitant]

REACTIONS (3)
  - DEPRESSION [None]
  - PALMAR-PLANTAR ERYTHRODYSAESTHESIA SYNDROME [None]
  - SUICIDAL IDEATION [None]
